FAERS Safety Report 4949508-0 (Version None)
Quarter: 2006Q1

REPORT INFORMATION
  Report Type: 
  Country: None (occurrence: None)
  Receive Date: 20060127
  Receipt Date: 20050204
  Transmission Date: 20060701
  Serious: Yes (Hospitalization, Other)
  Sender: FDA-Public Use
  Company Number: 05-02-0165

PATIENT
  Age: 31 Year
  Sex: Male
  Weight: 77.1115 kg

DRUGS (3)
  1. CLOZAPINE [Suspect]
     Indication: SCHIZOPHRENIA
     Dosage: 200MG BID ORAL
     Route: 048
     Dates: start: 20041001, end: 20050113
  2. PAXIL [Concomitant]
  3. ABILITY [Concomitant]

REACTIONS (1)
  - AGRANULOCYTOSIS [None]
